FAERS Safety Report 19134417 (Version 1)
Quarter: 2021Q2

REPORT INFORMATION
  Report Type: Spontaneous
  Country: US (occurrence: US)
  Receive Date: 20210414
  Receipt Date: 20210414
  Transmission Date: 20210717
  Serious: No
  Sender: FDA-Public Use
  Company Number: None

PATIENT
  Age: 48 Year
  Sex: Female
  Weight: 129.7 kg

DRUGS (8)
  1. OMEPRAZOLE. [Concomitant]
     Active Substance: OMEPRAZOLE
     Dates: start: 20210413
  2. FENTANYL. [Concomitant]
     Active Substance: FENTANYL
     Dates: start: 20210412
  3. VERSED [Concomitant]
     Active Substance: MIDAZOLAM HYDROCHLORIDE
     Dates: start: 20210412
  4. LACRILUBE [Concomitant]
     Dates: start: 20210413
  5. INSULIN REGULAR [Concomitant]
     Active Substance: INSULIN NOS
     Dates: start: 20210412
  6. REMDESIVIR. [Suspect]
     Active Substance: REMDESIVIR
     Indication: COVID-19
     Route: 042
     Dates: start: 20210411, end: 20210413
  7. DEXAMETHASONE. [Concomitant]
     Active Substance: DEXAMETHASONE
     Dates: start: 20210413
  8. NIMBEX [Concomitant]
     Active Substance: CISATRACURIUM BESYLATE
     Dates: start: 20210412

REACTIONS (2)
  - Flushing [None]
  - Rash [None]

NARRATIVE: CASE EVENT DATE: 20210413
